FAERS Safety Report 7690758 (Version 2)
Quarter: 2013Q3

REPORT INFORMATION
  Report Type: Spontaneous
  Country: CA (occurrence: PE)
  Receive Date: 20101203
  Receipt Date: 20130904
  Transmission Date: 20140515
  Serious: Yes (Other)
  Sender: FDA-Public Use
  Company Number: CA-JNJFOC-20101109152

PATIENT
  Sex: Female

DRUGS (2)
  1. NEMASOLE [Suspect]
     Indication: HOOKWORM INFECTION
     Dosage: SINGLE DOSE
     Route: 065
  2. IRON SUPPLEMENTS [Suspect]
     Indication: MEDICAL DIET
     Route: 065

REACTIONS (3)
  - Foetal death [Recovered/Resolved]
  - Premature labour [Recovered/Resolved]
  - Exposure during pregnancy [Recovered/Resolved]
